FAERS Safety Report 13659624 (Version 1)
Quarter: 2017Q2

REPORT INFORMATION
  Report Type: Spontaneous
  Country: US (occurrence: US)
  Receive Date: 20170616
  Receipt Date: 20170616
  Transmission Date: 20170830
  Serious: No
  Sender: FDA-Public Use
  Company Number: None

PATIENT
  Age: 4 Year

DRUGS (2)
  1. ZOLPIDEM TARTRATE. [Suspect]
     Active Substance: ZOLPIDEM TARTRATE
  2. GENERIC (BUPROPION HCL XL) [Suspect]
     Active Substance: BUPROPION HYDROCHLORIDE

REACTIONS (1)
  - Drug dispensing error [None]
